FAERS Safety Report 5465240-1 (Version None)
Quarter: 2007Q3

REPORT INFORMATION
  Report Type: 
  Country: None (occurrence: None)
  Receive Date: 20070924
  Receipt Date: 20070919
  Transmission Date: 20080115
  Serious: Yes (Death, Hospitalization, Other)
  Sender: FDA-Public Use
  Company Number: PHHO2007BR15576

PATIENT
  Age: 79 Year
  Sex: Female

DRUGS (3)
  1. LASIX [Concomitant]
  2. CARDILOL [Concomitant]
  3. DIOVAN AMLO [Suspect]
     Indication: HYPERTENSION
     Dosage: 160/5 MG
     Route: 048

REACTIONS (5)
  - COMA [None]
  - DYSPNOEA [None]
  - LUNG DISORDER [None]
  - MULTI-ORGAN FAILURE [None]
  - RESPIRATORY FAILURE [None]
